FAERS Safety Report 9701122 (Version 1)
Quarter: 2013Q4

REPORT INFORMATION
  Report Type: Spontaneous
  Country: US (occurrence: None)
  Receive Date: 20131119
  Receipt Date: 20131119
  Transmission Date: 20140711
  Serious: Yes (Death, Hospitalization)
  Sender: FDA-Public Use
  Company Number: 2013P1021024

PATIENT
  Age: 24 Year
  Sex: Female

DRUGS (6)
  1. BUPROPION [Suspect]
     Route: 048
  2. CITALOPRAM [Suspect]
     Route: 048
  3. CLONAZEPAM [Concomitant]
  4. TRAZODONE [Concomitant]
  5. ETHANOL [Concomitant]
  6. LORAZEPAM [Concomitant]

REACTIONS (13)
  - Unresponsive to stimuli [None]
  - Grand mal convulsion [None]
  - Hypotension [None]
  - Electrocardiogram QRS complex prolonged [None]
  - Ventricular fibrillation [None]
  - Cardiotoxicity [None]
  - Overdose [None]
  - General physical health deterioration [None]
  - Depressed level of consciousness [None]
  - Peripheral coldness [None]
  - Flushing [None]
  - Areflexia [None]
  - Corneal reflex decreased [None]
